FAERS Safety Report 19246280 (Version 6)
Quarter: 2021Q3

REPORT INFORMATION
  Report Type: Spontaneous
  Country: JP (occurrence: JP)
  Receive Date: 20210512
  Receipt Date: 20210819
  Transmission Date: 20211014
  Serious: Yes (Other)
  Sender: FDA-Public Use
  Company Number: JP-PFIZER INC-2021517569

PATIENT
  Age: 8 Decade
  Sex: Female

DRUGS (4)
  1. BRAFTOVI [Suspect]
     Active Substance: ENCORAFENIB
     Dosage: 200 MG
     Route: 048
     Dates: start: 20210520
  2. MEKTOVI [Suspect]
     Active Substance: BINIMETINIB
     Indication: MALIGNANT MELANOMA
     Dosage: UNK UNK, Q12H
     Route: 048
  3. BRAFTOVI [Suspect]
     Active Substance: ENCORAFENIB
     Indication: MALIGNANT MELANOMA
     Dosage: UNK
     Route: 048
  4. MEKTOVI [Suspect]
     Active Substance: BINIMETINIB
     Dosage: 15 MG, Q12H
     Route: 048
     Dates: start: 20210520

REACTIONS (3)
  - Bell^s palsy [Recovered/Resolved]
  - Hypokalaemia [Recovering/Resolving]
  - Nausea [Not Recovered/Not Resolved]
